FAERS Safety Report 11850677 (Version 1)
Quarter: 2015Q4

REPORT INFORMATION
  Report Type: Spontaneous
  Country: US (occurrence: US)
  Receive Date: 20151218
  Receipt Date: 20151218
  Transmission Date: 20160305
  Serious: No
  Sender: FDA-Public Use
  Company Number: US-JNJFOC-20151200502

PATIENT
  Age: 70 Year
  Sex: Male
  Weight: 69.85 kg

DRUGS (4)
  1. METOPROLOL [Concomitant]
     Active Substance: METOPROLOL
     Indication: CARDIAC DISORDER
     Route: 065
  2. CHILDRENS ZYRTEC [Suspect]
     Active Substance: CETIRIZINE HYDROCHLORIDE
     Route: 048
  3. CHILDRENS ZYRTEC [Suspect]
     Active Substance: CETIRIZINE HYDROCHLORIDE
     Indication: ALLERGIC RESPIRATORY DISEASE
     Dosage: 2X QD TOTALING 5 ML QD
     Route: 048
  4. OLOPATADINE HCL [Concomitant]
     Active Substance: OLOPATADINE HYDROCHLORIDE
     Indication: MULTIPLE ALLERGIES
     Dosage: 6.65MCG, 1 SP/2X QD BILAT
     Route: 065

REACTIONS (3)
  - Inappropriate schedule of drug administration [Unknown]
  - Drug ineffective [Unknown]
  - Product colour issue [Unknown]
